FAERS Safety Report 21028234 (Version 3)
Quarter: 2022Q3

REPORT INFORMATION
  Report Type: Report from Study
  Country: US (occurrence: US)
  Receive Date: 20220630
  Receipt Date: 20220812
  Transmission Date: 20221027
  Serious: Yes (Hospitalization)
  Sender: FDA-Public Use
  Company Number: US-ABBVIE-22K-163-4445325-00

PATIENT
  Age: 72 Year
  Sex: Male
  Weight: 69.462 kg

DRUGS (21)
  1. VENETOCLAX [Suspect]
     Active Substance: VENETOCLAX
     Indication: Myelodysplastic syndrome
     Dosage: DAYS 1  14 OF EACH 28-DAY CYCLE
     Route: 048
     Dates: start: 20211115, end: 20220622
  2. AZACITIDINE [Suspect]
     Active Substance: AZACITIDINE
     Indication: Myelodysplastic syndrome
     Dosage: 7 DAYS WITHIN THE FIRST 9 CALENDAR DAYS OF EACH 28-DAY CYCLE
     Route: 058
     Dates: start: 20211115
  3. ACYCLOVIR [Concomitant]
     Active Substance: ACYCLOVIR
     Indication: Antiviral prophylaxis
     Route: 048
     Dates: start: 20210930
  4. ATORVASTATIN [Concomitant]
     Active Substance: ATORVASTATIN
     Indication: Hyperlipidaemia
     Route: 048
     Dates: start: 2015
  5. ELIQUIS [Concomitant]
     Active Substance: APIXABAN
     Indication: Atrial fibrillation
     Route: 048
     Dates: start: 2018, end: 20211227
  6. ELIQUIS [Concomitant]
     Active Substance: APIXABAN
     Route: 048
     Dates: start: 20220117, end: 20220315
  7. ELIQUIS [Concomitant]
     Active Substance: APIXABAN
     Route: 048
     Dates: start: 20220316
  8. ENTRESTO [Concomitant]
     Active Substance: SACUBITRIL\VALSARTAN
     Indication: Arteriosclerosis coronary artery
     Dosage: 49/5 MG
     Route: 048
     Dates: start: 2017
  9. CARVEDILOL [Concomitant]
     Active Substance: CARVEDILOL
     Indication: Atrial fibrillation
     Route: 048
     Dates: start: 2018
  10. DIGOXIN [Concomitant]
     Active Substance: DIGOXIN
     Indication: Atrial fibrillation
     Route: 048
     Dates: start: 2018
  11. GABAPENTIN [Concomitant]
     Active Substance: GABAPENTIN
     Indication: Neuropathy peripheral
     Route: 048
     Dates: start: 2019
  12. LANTUS [Concomitant]
     Active Substance: INSULIN GLARGINE
     Indication: Type 2 diabetes mellitus
     Route: 058
     Dates: start: 2015
  13. OMEPRAZOLE [Concomitant]
     Active Substance: OMEPRAZOLE
     Indication: Gastrooesophageal reflux disease
     Route: 048
     Dates: start: 2017
  14. HYDROCORTISONE [Concomitant]
     Active Substance: HYDROCORTISONE
     Indication: Rash maculo-papular
     Route: 061
     Dates: start: 20211206
  15. OXYMETAZOLINE [Concomitant]
     Active Substance: OXYMETAZOLINE
     Indication: Epistaxis
     Route: 045
     Dates: start: 20211228
  16. LEVOFLOXACIN [Concomitant]
     Active Substance: LEVOFLOXACIN
     Indication: Infection prophylaxis
     Route: 048
     Dates: start: 20220116
  17. FLUCONAZOLE [Concomitant]
     Active Substance: FLUCONAZOLE
     Indication: Antifungal prophylaxis
     Route: 048
     Dates: start: 20220110
  18. ACETAMINOPHEN [Concomitant]
     Active Substance: ACETAMINOPHEN
     Indication: Pyrexia
     Route: 048
     Dates: start: 20220525
  19. FEXOFENADINE [Concomitant]
     Active Substance: FEXOFENADINE HYDROCHLORIDE
     Indication: Rhinitis allergic
     Route: 048
     Dates: start: 20220604
  20. CANNABIS SATIVA SUBSP. INDICA TOP [Concomitant]
     Active Substance: CANNABIS SATIVA SUBSP. INDICA TOP
     Indication: Sleep disorder
     Dosage: 1 JOINT
     Route: 048
     Dates: start: 201412
  21. AMOXICILLIN\CLAVULANIC ACID [Concomitant]
     Active Substance: AMOXICILLIN\CLAVULANIC ACID
     Indication: Pneumonia
     Dosage: 875-125 MILLIGRAM
     Route: 048
     Dates: start: 20220603

REACTIONS (1)
  - Anaemia [Not Recovered/Not Resolved]

NARRATIVE: CASE EVENT DATE: 20220621
